FAERS Safety Report 8400884-6 (Version None)
Quarter: 2012Q2

REPORT INFORMATION
  Report Type: 
  Country: None (occurrence: None)
  Receive Date: 20120601
  Receipt Date: 20120523
  Transmission Date: 20120825
  Serious: Yes (Other)
  Sender: FDA-Public Use
  Company Number: DE-BRISTOL-MYERS SQUIBB COMPANY-16558009

PATIENT
  Sex: Male

DRUGS (7)
  1. CISPLATIN [Suspect]
  2. FLUOROURACIL [Suspect]
  3. VIDEX [Suspect]
     Indication: HIV INFECTION
  4. SUSTIVA [Suspect]
     Indication: HIV INFECTION
  5. NELFINAVIR MESYLATE [Suspect]
     Indication: HIV INFECTION
  6. LAMIVUDINE [Suspect]
     Indication: HIV INFECTION
  7. ZERIT [Suspect]
     Indication: HIV INFECTION

REACTIONS (6)
  - POLYNEUROPATHY [None]
  - HYPERLIPIDAEMIA [None]
  - ANAL CANCER [None]
  - VIROLOGIC FAILURE [None]
  - LIPODYSTROPHY ACQUIRED [None]
  - DIARRHOEA [None]
